FAERS Safety Report 23959684 (Version 1)
Quarter: 2024Q2

REPORT INFORMATION
  Report Type: Spontaneous
  Country: US (occurrence: US)
  Receive Date: 20240611
  Receipt Date: 20240611
  Transmission Date: 20240716
  Serious: Yes (Hospitalization, Other)
  Sender: FDA-Public Use
  Company Number: US-SPECGX-T202401259

PATIENT
  Age: 23 Year
  Sex: Female

DRUGS (1)
  1. ACETAMINOPHEN\OXYCODONE HYDROCHLORIDE [Suspect]
     Active Substance: ACETAMINOPHEN\OXYCODONE HYDROCHLORIDE
     Indication: Product used for unknown indication
     Dosage: UNK
     Route: 065

REACTIONS (7)
  - CHANTER syndrome [Recovered/Resolved]
  - Unresponsive to stimuli [Recovering/Resolving]
  - Overdose [Unknown]
  - Cardiac arrest [Unknown]
  - Endotracheal intubation [Recovered/Resolved]
  - Craniotomy [Unknown]
  - Ventricular drainage [Recovered/Resolved]
